FAERS Safety Report 11753352 (Version 1)
Quarter: 2015Q4

REPORT INFORMATION
  Report Type: Spontaneous
  Country: US (occurrence: US)
  Receive Date: 20151119
  Receipt Date: 20151119
  Transmission Date: 20160304
  Serious: No
  Sender: FDA-Public Use
  Company Number: US-MYLANLABS-2015M1007129

PATIENT
  Age: 66 Year
  Sex: Female

DRUGS (5)
  1. TRIAMTERENE AND HYDROCHLOROTHIAZIDE [Suspect]
     Active Substance: HYDROCHLOROTHIAZIDE\TRIAMTERENE
     Indication: HYPERTENSION
     Dosage: 18.75/12.5 MG, QD
     Route: 048
     Dates: end: 20150214
  2. TRIAMTERENE AND HYDROCHLOROTHIAZIDE [Suspect]
     Active Substance: HYDROCHLOROTHIAZIDE\TRIAMTERENE
     Dosage: 18.75/12.5MG, QD
     Route: 048
     Dates: start: 20150216, end: 20150302
  3. TRIAMTERENE AND HYDROCHLOROTHIAZIDE [Suspect]
     Active Substance: HYDROCHLOROTHIAZIDE\TRIAMTERENE
     Dosage: 37.5/25 MG, QD
     Route: 048
     Dates: start: 20150214, end: 20150216
  4. VITAMINS                           /00067501/ [Concomitant]
     Active Substance: VITAMINS
     Dosage: UNK
  5. FLONASE                            /00908302/ [Suspect]
     Active Substance: MOMETASONE FUROATE
     Dosage: UNK, 2X
     Dates: start: 201502, end: 2015

REACTIONS (1)
  - Drug ineffective [Recovered/Resolved]

NARRATIVE: CASE EVENT DATE: 201502
